FAERS Safety Report 15678896 (Version 2)
Quarter: 2018Q4

REPORT INFORMATION
  Report Type: Report from Study
  Country: None (occurrence: CO)
  Receive Date: 20181202
  Receipt Date: 20181205
  Transmission Date: 20190205
  Serious: Yes (Other)
  Sender: FDA-Public Use
  Company Number: CO-ABBVIE-18K-036-2575617-00

PATIENT
  Age: 59 Year
  Sex: Female
  Weight: 60 kg

DRUGS (2)
  1. HUMIRA [Suspect]
     Active Substance: ADALIMUMAB
     Indication: RHEUMATOID ARTHRITIS
     Dosage: HUMIRA AC
     Route: 058
     Dates: start: 20150929
  2. HUMIRA [Suspect]
     Active Substance: ADALIMUMAB
     Indication: RHEUMATOID ARTHRITIS
     Dosage: HUMIRA AC
     Route: 058
     Dates: start: 2018, end: 20181018

REACTIONS (3)
  - Cytology abnormal [Unknown]
  - Biopsy site unspecified abnormal [Unknown]
  - Uterine neoplasm [Recovering/Resolving]

NARRATIVE: CASE EVENT DATE: 201811
